FAERS Safety Report 14566443 (Version 1)
Quarter: 2018Q1

REPORT INFORMATION
  Report Type: Spontaneous
  Country: US (occurrence: US)
  Receive Date: 20180223
  Receipt Date: 20180223
  Transmission Date: 20180509
  Serious: No
  Sender: FDA-Public Use
  Company Number: US-BAYER-2018-035012

PATIENT
  Age: 34 Year
  Sex: Female
  Weight: 72.11 kg

DRUGS (2)
  1. CLARITIN [Suspect]
     Active Substance: LORATADINE
     Indication: NASOPHARYNGITIS
  2. CLARITIN [Suspect]
     Active Substance: LORATADINE
     Indication: HYPERSENSITIVITY
     Dosage: 1 DF, ONCE
     Route: 048

REACTIONS (5)
  - Exposure during pregnancy [Unknown]
  - Dizziness [Unknown]
  - Feeling abnormal [Unknown]
  - Eye movement disorder [Unknown]
  - Asthenopia [Unknown]
